FAERS Safety Report 4611795-6 (Version None)
Quarter: 2005Q2

REPORT INFORMATION
  Report Type: 
  Country: None (occurrence: None)
  Receive Date: 20050308
  Receipt Date: 20041201
  Transmission Date: 20051028
  Serious: Yes (Other)
  Sender: FDA-Public Use
  Company Number: 2004UW24631

PATIENT
  Age: 55 Year
  Sex: Male
  Weight: 81.64 kg

DRUGS (2)
  1. CRESTOR [Suspect]
     Indication: HYPERCHOLESTEROLAEMIA
     Dosage: 10 MG PO
     Route: 048
  2. ASPIRIN [Concomitant]

REACTIONS (2)
  - HYPOAESTHESIA ORAL [None]
  - PAIN IN EXTREMITY [None]
